FAERS Safety Report 7554894-1 (Version None)
Quarter: 2011Q2

REPORT INFORMATION
  Report Type: 
  Country: None (occurrence: None)
  Receive Date: 20110617
  Receipt Date: 20110606
  Transmission Date: 20111010
  Serious: Yes (Death, Life-Threatening, Hospitalization, Other)
  Sender: FDA-Public Use
  Company Number: JP-PFIZER INC-2009233788

PATIENT
  Age: 68 Year
  Sex: Female

DRUGS (7)
  1. DOXORUBICIN HCL [Suspect]
     Dosage: UNK
     Dates: start: 20090423
  2. METHOTREXATE SODIUM [Suspect]
     Indication: ACUTE LYMPHOCYTIC LEUKAEMIA
     Dosage: 700 MG
     Route: 042
     Dates: start: 20090423, end: 20090423
  3. DEXAMETHASONE [Suspect]
     Dosage: UNK
     Dates: start: 20090423
  4. CYTARABINE [Suspect]
     Indication: ACUTE LYMPHOCYTIC LEUKAEMIA
     Dosage: 2800 MG, 1 DAY
     Route: 042
     Dates: start: 20090425, end: 20090426
  5. CYCLOPHOSPHAMIDE [Suspect]
     Dosage: UNK
     Dates: start: 20090423
  6. VINCRISTINE SULFATE [Suspect]
     Dosage: UNK
     Dates: start: 20090423
  7. SPRYCEL [Suspect]
     Indication: ACUTE LYMPHOCYTIC LEUKAEMIA
     Dosage: 70 MG, 2X/DAY
     Dates: start: 20090414, end: 20090528

REACTIONS (5)
  - WHITE BLOOD CELL COUNT DECREASED [None]
  - PLATELET COUNT DECREASED [None]
  - NEOPLASM MALIGNANT [None]
  - NEUTROPHIL COUNT DECREASED [None]
  - ANAEMIA [None]
